FAERS Safety Report 4334222-5 (Version None)
Quarter: 2004Q2

REPORT INFORMATION
  Report Type: 
  Country: None (occurrence: None)
  Receive Date: 20040402
  Receipt Date: 20040322
  Transmission Date: 20050107
  Serious: Yes (Hospitalization)
  Sender: FDA-Public Use
  Company Number: 2004206086IN

PATIENT
  Age: 31 Year
  Sex: Male
  Weight: 60 kg

DRUGS (1)
  1. FRAGMIN [Suspect]
     Indication: PROPHYLAXIS
     Dosage: 5000 IU, BID, SUBCUTANEOUS
     Route: 058

REACTIONS (3)
  - AXILLARY VEIN THROMBOSIS [None]
  - DRUG INEFFECTIVE [None]
  - VENA CAVA THROMBOSIS [None]
